FAERS Safety Report 6378971-6 (Version None)
Quarter: 2009Q3

REPORT INFORMATION
  Report Type: 
  Country: None (occurrence: None)
  Receive Date: 20090928
  Receipt Date: 20090922
  Transmission Date: 20100115
  Serious: Yes (Death)
  Sender: FDA-Public Use
  Company Number: US-CELGENEUS-163-21880-09091732

PATIENT
  Sex: Male

DRUGS (1)
  1. REVLIMID [Suspect]
     Route: 048
     Dates: start: 20090107, end: 20090918

REACTIONS (6)
  - DEATH [None]
  - DIARRHOEA [None]
  - HEARING IMPAIRED [None]
  - HYPOTENSION [None]
  - PERONEAL NERVE PALSY [None]
  - SKIN ULCER [None]
